FAERS Safety Report 5840924-1 (Version None)
Quarter: 2008Q3

REPORT INFORMATION
  Report Type: 
  Country: None (occurrence: None)
  Receive Date: 20080731
  Receipt Date: 20080508
  Transmission Date: 20090109
  Serious: No
  Sender: FDA-Public Use
  Company Number: US200805001906

PATIENT
  Age: 65 Year
  Sex: Male
  Weight: 133.8 kg

DRUGS (11)
  1. BYETTA [Suspect]
     Indication: TYPE 2 DIABETES MELLITUS
     Dosage: 5 UG, 2/D, SUBCUTANEOUS
     Route: 058
     Dates: start: 20080201
  2. . [Concomitant]
  3. . [Concomitant]
  4. GLIPIZIDE [Concomitant]
  5. METFORMIN HCL [Concomitant]
  6. LIPITOR [Concomitant]
  7. TRICOR [Concomitant]
  8. LANOXIN [Concomitant]
  9. LISINOPRIL /USA/ (LISINOPRIL) [Concomitant]
  10. ATENOLOL [Concomitant]
  11. WARFARIN SODIUM [Concomitant]

REACTIONS (2)
  - PHOTOPSIA [None]
  - VISION BLURRED [None]
